FAERS Safety Report 21338360 (Version 1)
Quarter: 2022Q3

REPORT INFORMATION
  Report Type: Spontaneous
  Country: FR (occurrence: FR)
  Receive Date: 20220915
  Receipt Date: 20220915
  Transmission Date: 20221027
  Serious: Yes (Life-Threatening)
  Sender: FDA-Public Use
  Company Number: None

PATIENT
  Age: 25 Year
  Sex: Female
  Weight: 52 kg

DRUGS (4)
  1. ZOLPIDEM [Suspect]
     Active Substance: ZOLPIDEM TARTRATE
     Indication: Suicide attempt
     Dosage: 280 MG, TOTAL (28 CP DE 10 MG)
     Route: 048
     Dates: start: 20160314
  2. PAROXETINE HYDROCHLORIDE [Suspect]
     Active Substance: PAROXETINE HYDROCHLORIDE
     Indication: Suicide attempt
     Dosage: 560 MG, TOTAL (28 CP DE 20 MG)
     Route: 048
     Dates: start: 20160314
  3. LORMETAZEPAM [Suspect]
     Active Substance: LORMETAZEPAM
     Indication: Suicide attempt
     Dosage: 112 MG, TOTAL (14 CP DE 8 MG)
     Route: 065
     Dates: start: 20160314
  4. QUETIAPINE FUMARATE [Suspect]
     Active Substance: QUETIAPINE FUMARATE
     Indication: Suicide attempt
     Dosage: 60 DF, TOTAL (3000 MG)
     Route: 048
     Dates: start: 20160314

REACTIONS (2)
  - Poisoning deliberate [Recovered/Resolved]
  - Anticholinergic syndrome [Recovered/Resolved]

NARRATIVE: CASE EVENT DATE: 20160314
